FAERS Safety Report 7732899-5 (Version None)
Quarter: 2011Q3

REPORT INFORMATION
  Report Type: 
  Country: None (occurrence: None)
  Receive Date: 20110907
  Receipt Date: 20110824
  Transmission Date: 20111222
  Serious: Yes (Disabling, Other)
  Sender: FDA-Public Use
  Company Number: GB-PURDUE-USA-2011-0074337

PATIENT
  Age: 87 Year
  Sex: Male

DRUGS (4)
  1. CO-BENELDOPA [Concomitant]
     Indication: PRODUCT USED FOR UNKNOWN INDICATION
     Dosage: 125 MG, TID
  2. ENTACAPONE [Concomitant]
     Indication: PRODUCT USED FOR UNKNOWN INDICATION
     Dosage: 200 MG, TID
  3. CODEINE SULFATE [Concomitant]
     Indication: PRODUCT USED FOR UNKNOWN INDICATION
  4. TRAMADOL HCL [Suspect]
     Indication: PAIN
     Route: 048

REACTIONS (1)
  - PARKINSON'S DISEASE [None]
